FAERS Safety Report 23632997 (Version 2)
Quarter: 2024Q2

REPORT INFORMATION
  Report Type: Report from Study
  Country: CN (occurrence: CN)
  Receive Date: 20240314
  Receipt Date: 20240506
  Transmission Date: 20240716
  Serious: Yes (Hospitalization, Other)
  Sender: FDA-Public Use
  Company Number: CN-ELI_LILLY_AND_COMPANY-CN202307014598

PATIENT
  Age: 50 Year
  Sex: Male

DRUGS (9)
  1. RETEVMO [Suspect]
     Active Substance: SELPERCATINIB
     Indication: Lung cancer metastatic
     Dosage: 160 MG, BID
     Route: 048
     Dates: start: 20230629
  2. RETEVMO [Suspect]
     Active Substance: SELPERCATINIB
     Dosage: 160 MG, BID
     Route: 048
     Dates: start: 20230824
  3. RETEVMO [Suspect]
     Active Substance: SELPERCATINIB
     Dosage: 160 MG, BID
     Route: 048
     Dates: start: 20230905
  4. RETEVMO [Suspect]
     Active Substance: SELPERCATINIB
     Dosage: 160 MG, BID
     Route: 048
     Dates: start: 20230919
  5. RETEVMO [Suspect]
     Active Substance: SELPERCATINIB
     Dosage: 160 MG, BID
     Route: 048
     Dates: start: 20230929
  6. DABRAFENIB [Suspect]
     Active Substance: DABRAFENIB
     Indication: Lung neoplasm malignant
     Dosage: UNK UNK, UNKNOWN
     Route: 048
  7. TRAMETINIB [Concomitant]
     Active Substance: TRAMETINIB
     Indication: Lung neoplasm malignant
     Dosage: UNK UNK, UNKNOWN
     Route: 048
  8. PEMETREXED [Concomitant]
     Active Substance: PEMETREXED
     Indication: Malignant neoplasm progression
  9. BEVACIZUMAB [Concomitant]
     Active Substance: BEVACIZUMAB
     Indication: Malignant neoplasm progression

REACTIONS (9)
  - Pyrexia [Unknown]
  - Malignant neoplasm progression [Unknown]
  - Sleep disorder due to general medical condition, insomnia type [Unknown]
  - Faeces hard [Unknown]
  - Hypochloraemia [Unknown]
  - Hyponatraemia [Unknown]
  - Decreased appetite [Unknown]
  - Dizziness [Unknown]
  - Drug resistance [Unknown]

NARRATIVE: CASE EVENT DATE: 20240101
